FAERS Safety Report 6303994-2 (Version None)
Quarter: 2009Q3

REPORT INFORMATION
  Report Type: 
  Country: None (occurrence: None)
  Receive Date: 20090810
  Receipt Date: 20090810
  Transmission Date: 20100115
  Serious: No
  Sender: FDA-Public Use
  Company Number: None

PATIENT
  Age: 53 Year
  Sex: Female
  Weight: 95.709 kg

DRUGS (1)
  1. SYNTHROID [Suspect]
     Indication: HYPERTHYROIDISM
     Dosage: 1 TABLET DAILY PO
     Route: 048
     Dates: start: 20090718, end: 20090802

REACTIONS (2)
  - ABDOMINAL PAIN UPPER [None]
  - HYPERSENSITIVITY [None]
